FAERS Safety Report 21307857 (Version 3)
Quarter: 2022Q4

REPORT INFORMATION
  Report Type: Report from Study
  Country: US (occurrence: US)
  Receive Date: 20220908
  Receipt Date: 20221116
  Transmission Date: 20230112
  Serious: Yes (Other)
  Sender: FDA-Public Use
  Company Number: US-PFIZER INC-202201139690

PATIENT

DRUGS (2)
  1. GEMCITABINE HYDROCHLORIDE [Suspect]
     Active Substance: GEMCITABINE HYDROCHLORIDE
     Indication: Osteosarcoma recurrent
     Dosage: 1000 MG/M2, CYCLIC: WEEKLY X 3 IN 4-WEEK CYCLES
  2. PACLITAXEL [Suspect]
     Active Substance: PACLITAXEL
     Indication: Osteosarcoma recurrent
     Dosage: 125 MG/M2, CYCLIC: WEEKLY X 3 IN 4-WEEK CYCLES

REACTIONS (1)
  - Pleural effusion [Unknown]
